FAERS Safety Report 13068699 (Version 2)
Quarter: 2017Q1

REPORT INFORMATION
  Report Type: Spontaneous
  Country: IT (occurrence: IT)
  Receive Date: 20161228
  Receipt Date: 20170117
  Transmission Date: 20170428
  Serious: Yes (Other)
  Sender: FDA-Public Use
  Company Number: IT-PFIZER INC-2016597202

PATIENT
  Age: 66 Year
  Sex: Male

DRUGS (7)
  1. OXALIPLATIN. [Suspect]
     Active Substance: OXALIPLATIN
     Indication: COLON CANCER
     Dosage: 250 MG, CYCLIC
     Route: 042
     Dates: start: 20140401, end: 20140401
  2. OXALIPLATIN. [Suspect]
     Active Substance: OXALIPLATIN
     Dosage: 200 MG, CYCLIC
     Route: 042
     Dates: start: 20140610, end: 20140610
  3. OXALIPLATIN. [Suspect]
     Active Substance: OXALIPLATIN
     Dosage: 200 MG, CYCLIC
     Route: 042
     Dates: start: 20140701, end: 20140701
  4. OXALIPLATIN. [Suspect]
     Active Substance: OXALIPLATIN
     Dosage: 250 MG, CYCLIC
     Route: 042
     Dates: start: 20140422, end: 20140422
  5. OXALIPLATIN. [Suspect]
     Active Substance: OXALIPLATIN
     Dosage: 200 MG, CYCLIC
     Route: 042
     Dates: start: 20140513, end: 20140513
  6. OXALIPLATIN. [Suspect]
     Active Substance: OXALIPLATIN
     Dosage: 200 MG, CYCLIC
     Route: 042
     Dates: start: 20140825, end: 20140825
  7. OXALIPLATIN. [Suspect]
     Active Substance: OXALIPLATIN
     Dosage: 200 MG, CYCLIC
     Route: 042
     Dates: start: 20140804, end: 20140804

REACTIONS (7)
  - Thrombocytopenia [Recovered/Resolved]
  - Muscular weakness [Recovered/Resolved]
  - Paraesthesia [Not Recovered/Not Resolved]
  - Infusion related reaction [Unknown]
  - Dyspnoea exertional [Recovered/Resolved]
  - Arthralgia [Not Recovered/Not Resolved]
  - Neuropathy peripheral [Not Recovered/Not Resolved]

NARRATIVE: CASE EVENT DATE: 20140416
